FAERS Safety Report 4440829-7 (Version None)
Quarter: 2004Q3

REPORT INFORMATION
  Report Type: 
  Country: None (occurrence: None)
  Receive Date: 20040903
  Receipt Date: 20040115
  Transmission Date: 20050211
  Serious: Yes (Hospitalization)
  Sender: FDA-Public Use
  Company Number: TW-GLAXOSMITHKLINE-B0320303A

PATIENT
  Age: 23 Year
  Sex: Male

DRUGS (10)
  1. LAMIVUDINE [Suspect]
     Indication: HEPATITIS B
     Dosage: 100MG PER DAY
     Route: 048
     Dates: start: 20020301, end: 20021010
  2. ACETAMINOPHEN [Concomitant]
  3. ASCORBIC ACID [Concomitant]
  4. DEXTROSE [Concomitant]
  5. DOMPERIDONE [Concomitant]
  6. PHYTONADIONE [Concomitant]
  7. POTASSIUM [Concomitant]
  8. SILYMARIN [Concomitant]
  9. VACCINE [Concomitant]
  10. VITAMIN B COMPLEX CAP [Concomitant]

REACTIONS (10)
  - ABDOMINAL DISTENSION [None]
  - ACTIVATED PARTIAL THROMBOPLASTIN TIME PROLONGED [None]
  - ALANINE AMINOTRANSFERASE INCREASED [None]
  - ANOREXIA [None]
  - ASPARTATE AMINOTRANSFERASE INCREASED [None]
  - HEPATIC ENZYME INCREASED [None]
  - HYPERBILIRUBINAEMIA [None]
  - HYPERTROPHY [None]
  - NAUSEA [None]
  - PROTHROMBIN TIME ABNORMAL [None]
